FAERS Safety Report 10975392 (Version 1)
Quarter: 2015Q2

REPORT INFORMATION
  Report Type: Spontaneous
  Country: BR (occurrence: BR)
  Receive Date: 20150401
  Receipt Date: 20150401
  Transmission Date: 20150821
  Serious: Yes (Other)
  Sender: FDA-Public Use
  Company Number: BR-GLAXOSMITHKLINE-BR2015GSK040361

PATIENT
  Sex: Female
  Weight: 50 kg

DRUGS (2)
  1. RYTMONORM [Suspect]
     Active Substance: PROPAFENONE
     Indication: ARRHYTHMIA
     Dosage: 300 MG, BID
     Route: 048
     Dates: start: 2011
  2. CLOXAZOLAM [Concomitant]
     Active Substance: CLOXAZOLAM

REACTIONS (6)
  - Nervousness [Unknown]
  - Sleep disorder [Not Recovered/Not Resolved]
  - Surgery [Unknown]
  - Anxiety [Not Recovered/Not Resolved]
  - Tremor [Unknown]
  - Stress [Unknown]

NARRATIVE: CASE EVENT DATE: 2013
